FAERS Safety Report 5913326-7 (Version None)
Quarter: 2008Q3

REPORT INFORMATION
  Report Type: 
  Country: None (occurrence: None)
  Receive Date: 20080909
  Receipt Date: 20071023
  Transmission Date: 20090109
  Serious: Yes (Death, Other)
  Sender: FDA-Public Use
  Company Number: 163-20785-07081148

PATIENT
  Age: 73 Year
  Sex: Female

DRUGS (2)
  1. THALOMID [Suspect]
     Indication: MYELOFIBROSIS
     Dosage: 50 MG, QD, ORAL ; ORAL
     Route: 047
     Dates: start: 20070301, end: 20070501
  2. THALOMID [Suspect]
     Indication: MYELOFIBROSIS
     Dosage: 50 MG, QD, ORAL ; ORAL
     Route: 047
     Dates: start: 20070403, end: 20070522

REACTIONS (3)
  - FALL [None]
  - HIP FRACTURE [None]
  - NEOPLASM PROGRESSION [None]
